FAERS Safety Report 15080791 (Version 2)
Quarter: 2018Q3

REPORT INFORMATION
  Report Type: Spontaneous
  Country: DE (occurrence: DE)
  Receive Date: 20180628
  Receipt Date: 20180816
  Transmission Date: 20181010
  Serious: Yes (Hospitalization)
  Sender: FDA-Public Use
  Company Number: DE-ROCHE-2145553

PATIENT
  Age: 51 Year
  Sex: Male
  Weight: 87 kg

DRUGS (5)
  1. OMEPRAZOL [Concomitant]
     Active Substance: OMEPRAZOLE
     Indication: GASTROOESOPHAGEAL REFLUX DISEASE
     Route: 048
  2. ZOLEDRONATE [Concomitant]
     Active Substance: ZOLEDRONIC ACID
     Indication: OSTEOLYSIS
     Route: 042
     Dates: start: 20180405
  3. ALECENSA [Suspect]
     Active Substance: ALECTINIB HYDROCHLORIDE
     Indication: BRONCHIAL CARCINOMA
     Route: 065
  4. BISOPROLOL [Concomitant]
     Active Substance: BISOPROLOL
     Indication: HYPERTENSION
     Route: 048
  5. ALECENSA [Suspect]
     Active Substance: ALECTINIB HYDROCHLORIDE
     Route: 048
     Dates: start: 20180514, end: 20180525

REACTIONS (4)
  - Myalgia [Recovering/Resolving]
  - Blood creatine phosphokinase increased [Recovering/Resolving]
  - Polymyositis [Recovering/Resolving]
  - Muscular weakness [Recovering/Resolving]

NARRATIVE: CASE EVENT DATE: 20180525
